FAERS Safety Report 4988298-2 (Version None)
Quarter: 2006Q2

REPORT INFORMATION
  Report Type: 
  Country: None (occurrence: None)
  Receive Date: 20060425
  Receipt Date: 20060413
  Transmission Date: 20061013
  Serious: Yes (Death, Life-Threatening, Hospitalization)
  Sender: FDA-Public Use
  Company Number: 2006037034

PATIENT
  Age: 84 Year
  Sex: Male

DRUGS (2)
  1. FLUCONAZOLE [Suspect]
     Indication: GINGIVITIS
     Dosage: 50 MG/5 ML, ORAL
     Route: 048
  2. PREVISCAN (FLUINDIONE) [Suspect]
     Indication: CARDIAC FIBRILLATION
     Dosage: 10 MG (20 MG), ORAL
     Route: 048

REACTIONS (12)
  - APHASIA [None]
  - CARDIOPULMONARY FAILURE [None]
  - CEREBRAL HAEMATOMA [None]
  - CEREBRAL HAEMORRHAGE [None]
  - DRUG INTERACTION [None]
  - GINGIVITIS [None]
  - HAEMODYNAMIC INSTABILITY [None]
  - HEMIPLEGIA [None]
  - INTERNATIONAL NORMALISED RATIO INCREASED [None]
  - LUNG DISORDER [None]
  - POST PROCEDURAL COMPLICATION [None]
  - PROTHROMBIN TIME SHORTENED [None]
